FAERS Safety Report 20787200 (Version 1)
Quarter: 2022Q2

REPORT INFORMATION
  Report Type: Spontaneous
  Country: US (occurrence: US)
  Receive Date: 20220505
  Receipt Date: 20220505
  Transmission Date: 20220721
  Serious: Yes (Disabling)
  Sender: FDA-Public Use
  Company Number: US-UCBSA-2021053627

PATIENT
  Age: 32 Year
  Sex: Female
  Weight: 117.9 kg

DRUGS (1)
  1. CIMZIA [Suspect]
     Active Substance: CERTOLIZUMAB PEGOL
     Indication: Ankylosing spondylitis
     Dosage: UNK
     Route: 030
     Dates: start: 20210422, end: 20210422

REACTIONS (9)
  - Arthralgia [Not Recovered/Not Resolved]
  - Eye pruritus [Recovered/Resolved]
  - Urticaria [Recovered/Resolved]
  - Heart rate increased [Recovered/Resolved]
  - Erythema [Recovered/Resolved]
  - Hypotension [Recovered/Resolved]
  - Pain in jaw [Recovered/Resolved]
  - Nasopharyngitis [Unknown]
  - Incorrect route of product administration [Unknown]

NARRATIVE: CASE EVENT DATE: 20210422
